FAERS Safety Report 9474020 (Version 2)
Quarter: 2013Q3

REPORT INFORMATION
  Report Type: Spontaneous
  Country: JP (occurrence: JP)
  Receive Date: 20130823
  Receipt Date: 20130823
  Transmission Date: 20140515
  Serious: Yes (Life-Threatening, Hospitalization)
  Sender: FDA-Public Use
  Company Number: JP-B.I. PHARMACEUTICALS,INC./RIDGEFIELD-2013-BI-22391NB

PATIENT
  Age: 58 Year
  Sex: Male

DRUGS (14)
  1. SPIRIVA [Suspect]
     Indication: CHRONIC OBSTRUCTIVE PULMONARY DISEASE
     Dosage: 2 PUF
     Route: 055
  2. BISOLVON [Suspect]
     Indication: ASTHMA
     Route: 055
     Dates: start: 20091004, end: 20130720
  3. BISOLVON [Suspect]
     Indication: CHRONIC OBSTRUCTIVE PULMONARY DISEASE
  4. MUCOSOLVAN L [Suspect]
     Dosage: 45 MG
     Route: 048
  5. SINGULAIR [Suspect]
     Dosage: 10 MG
     Route: 048
  6. IPD [Suspect]
     Dosage: 300 MG
     Route: 048
  7. UNIPHYL LA [Suspect]
     Dosage: 200 MG
     Route: 048
  8. MUCODYNE [Suspect]
     Dosage: 1500 MG
     Route: 048
  9. SYMBICORT [Suspect]
     Indication: ASTHMA
     Dosage: 8 PUF
     Route: 055
  10. PREDOHAN [Suspect]
     Dosage: 2.5 MG
     Route: 065
  11. NEXIUM [Suspect]
     Dosage: 10 MG
     Route: 065
  12. SAIBOKUTO [Suspect]
     Dosage: 22.5 MG
     Route: 065
  13. PREDONINE [Suspect]
     Dosage: 20 MG
     Route: 065
     Dates: start: 20130717, end: 20130720
  14. VENETLIN [Concomitant]
     Route: 055

REACTIONS (1)
  - Dyspnoea [Recovered/Resolved]
